FAERS Safety Report 12456370 (Version 2)
Quarter: 2016Q2

REPORT INFORMATION
  Report Type: Spontaneous
  Country: US (occurrence: US)
  Receive Date: 20160610
  Receipt Date: 20160614
  Transmission Date: 20160815
  Serious: Yes (Other)
  Sender: FDA-Public Use
  Company Number: PHEH2016US014081

PATIENT
  Age: 73 Year
  Sex: Male

DRUGS (1)
  1. SANDOSTATIN LAR DEPOT [Suspect]
     Active Substance: OCTREOTIDE ACETATE
     Indication: GASTRIC CANCER STAGE IV
     Dosage: 30 MG, UNK
     Route: 030
     Dates: end: 20160510

REACTIONS (17)
  - Myalgia [Unknown]
  - Feeling abnormal [Unknown]
  - Injection site haemorrhage [Unknown]
  - Fatigue [Unknown]
  - Flushing [Unknown]
  - Injection site pain [Unknown]
  - Hepatic lesion [Unknown]
  - Blood pressure fluctuation [Unknown]
  - Malnutrition [Unknown]
  - Gait disturbance [Unknown]
  - Diarrhoea [Unknown]
  - Steatorrhoea [Unknown]
  - Carcinoid syndrome [Unknown]
  - Weight decreased [Unknown]
  - Frequent bowel movements [Unknown]
  - Faeces pale [Unknown]
  - Malabsorption [Unknown]

NARRATIVE: CASE EVENT DATE: 20160411
